FAERS Safety Report 7515521-2 (Version None)
Quarter: 2011Q2

REPORT INFORMATION
  Report Type: 
  Country: None (occurrence: None)
  Receive Date: 20110601
  Receipt Date: 20100711
  Transmission Date: 20111010
  Serious: No
  Sender: FDA-Public Use
  Company Number: US-PFIZER INC-2010086932

PATIENT
  Sex: Female
  Weight: 59 kg

DRUGS (4)
  1. CHANTIX [Suspect]
     Indication: SMOKING CESSATION THERAPY
     Dosage: 0.5 MG, 2X/DAY
     Route: 048
     Dates: start: 20100623
  2. NAPROXEN [Concomitant]
     Indication: INFLAMMATORY PAIN
     Dosage: 500 MG, 2X/DAY
     Route: 048
  3. GESTORAL [Concomitant]
     Indication: ANXIETY
     Dosage: 25 MG, 4X/DAY
     Route: 048
  4. CYMBALTA [Concomitant]
     Indication: DEPRESSION
     Dosage: 30 MG, 2X/DAY
     Route: 048

REACTIONS (1)
  - DIZZINESS [None]
